FAERS Safety Report 6186298-0 (Version None)
Quarter: 2009Q2

REPORT INFORMATION
  Report Type: 
  Country: None (occurrence: None)
  Receive Date: 20090511
  Receipt Date: 20090504
  Transmission Date: 20091009
  Serious: Yes (Death)
  Sender: FDA-Public Use
  Company Number: CN-SANOFI-SYNTHELABO-F01200800034

PATIENT
  Sex: Male
  Weight: 75 kg

DRUGS (1)
  1. DOXORUBICIN HCL [Suspect]
     Indication: HEPATIC NEOPLASM MALIGNANT
     Route: 041
     Dates: start: 20071204, end: 20071204

REACTIONS (2)
  - HEPATIC ENCEPHALOPATHY [None]
  - UPPER GASTROINTESTINAL HAEMORRHAGE [None]
